FAERS Safety Report 8839948 (Version 1)
Quarter: 2012Q4

REPORT INFORMATION
  Report Type: 
  Country: US (occurrence: US)
  Receive Date: 20121015
  Receipt Date: 20121015
  Transmission Date: 20130627
  Serious: No
  Sender: FDA-Public Use
  Company Number: US-B.I. PHARMACEUTICALS,INC./RIDGEFIELD-2012-BP-24412BP

PATIENT
  Sex: Female
  Weight: 73 kg

DRUGS (11)
  1. PRADAXA [Suspect]
     Indication: ATRIAL FIBRILLATION
     Dosage: 300 mg
     Route: 048
     Dates: start: 2011
  2. COREG [Concomitant]
     Indication: CARDIAC DISORDER
     Route: 048
     Dates: start: 1994
  3. PAROXETINE [Concomitant]
     Indication: NERVOUSNESS
     Dosage: 20 mg
     Route: 048
     Dates: start: 1994
  4. ECOTRIN [Concomitant]
     Indication: CARDIAC DISORDER
     Dosage: 81 mg
     Route: 048
     Dates: start: 1980
  5. LISINOPRIL [Concomitant]
     Indication: HYPERTENSION
     Dosage: 20 mg
     Route: 048
  6. FOLBEE [Concomitant]
     Indication: SUPPLEMENTATION THERAPY
     Route: 048
  7. ISOSORBIDE [Concomitant]
     Indication: CARDIAC DISORDER
     Dosage: 30 mg
     Route: 048
     Dates: start: 1994
  8. RANITIDINE [Concomitant]
     Indication: GASTROOESOPHAGEAL REFLUX DISEASE
     Dosage: 300 mg
     Route: 048
  9. PLAVIX [Concomitant]
     Indication: CARDIAC DISORDER
     Dosage: 75 mg
     Route: 048
     Dates: start: 2009
  10. AMLODIPINE [Concomitant]
     Dosage: 5 mg
     Route: 048
  11. ZETIA [Concomitant]
     Dosage: 10 mg
     Route: 048
     Dates: start: 1994

REACTIONS (6)
  - Abdominal discomfort [Not Recovered/Not Resolved]
  - Hunger [Not Recovered/Not Resolved]
  - Nausea [Not Recovered/Not Resolved]
  - Gastroenteritis [Not Recovered/Not Resolved]
  - Cholelithiasis [Not Recovered/Not Resolved]
  - Irritable bowel syndrome [Unknown]
